FAERS Safety Report 12608040 (Version 1)
Quarter: 2016Q3

REPORT INFORMATION
  Report Type: Spontaneous
  Country: AU (occurrence: AU)
  Receive Date: 20160729
  Receipt Date: 20160729
  Transmission Date: 20161109
  Serious: Yes (Life-Threatening, Other)
  Sender: FDA-Public Use
  Company Number: AU-MUNDIPHARMA DS AND PHARMACOVIGILANCE-GBR-2016-0038506

PATIENT
  Sex: Male
  Weight: 61 kg

DRUGS (5)
  1. NORSPAN [Suspect]
     Active Substance: BUPRENORPHINE
     Indication: NEURALGIA
     Dosage: 10 MCG, Q1H
     Route: 062
     Dates: start: 20160624, end: 20160630
  2. COLOXYL                            /00061602/ [Concomitant]
     Indication: CONSTIPATION
     Dosage: 100 MG, BID
     Dates: start: 20160622
  3. GABAPENTIN. [Concomitant]
     Active Substance: GABAPENTIN
     Indication: NEURALGIA
     Dosage: 200 MG, TID
     Dates: start: 20160622
  4. CEFTRIAXONE. [Concomitant]
     Active Substance: CEFTRIAXONE
     Indication: PNEUMONIA
     Dosage: 2 G, Q8H
     Dates: start: 20160621, end: 20160624
  5. CLEXANE [Concomitant]
     Active Substance: ENOXAPARIN SODIUM
     Indication: PROPHYLAXIS
     Dosage: 40 MG, DAILY
     Dates: start: 20160625

REACTIONS (5)
  - Depressed level of consciousness [Recovered/Resolved]
  - Somnolence [Recovered/Resolved]
  - Miosis [Recovered/Resolved]
  - Toxicity to various agents [Recovered/Resolved]
  - Respiratory rate decreased [Recovered/Resolved]

NARRATIVE: CASE EVENT DATE: 20160630
